FAERS Safety Report 12607455 (Version 1)
Quarter: 2016Q3

REPORT INFORMATION
  Report Type: Report from Study
  Country: US (occurrence: US)
  Receive Date: 20160729
  Receipt Date: 20160729
  Transmission Date: 20161109
  Serious: Yes (Hospitalization, Other)
  Sender: FDA-Public Use
  Company Number: US-BRISTOL-MYERS SQUIBB COMPANY-BMS-2016-060509

PATIENT
  Sex: Female
  Weight: 46.2 kg

DRUGS (1)
  1. ABATACEPT [Suspect]
     Active Substance: ABATACEPT
     Indication: RHEUMATOID ARTHRITIS
     Route: 042

REACTIONS (7)
  - Blood disorder [Unknown]
  - Fatigue [Unknown]
  - Drug dose omission [Unknown]
  - Vein disorder [Unknown]
  - Arthralgia [Unknown]
  - Anaphylactic reaction [Unknown]
  - Retinal detachment [Unknown]
